FAERS Safety Report 4528496-5 (Version None)
Quarter: 2004Q4

REPORT INFORMATION
  Report Type: 
  Country: None (occurrence: None)
  Receive Date: 20041216
  Receipt Date: 20030802
  Transmission Date: 20050328
  Serious: No
  Sender: FDA-Public Use
  Company Number: US-BRISTOL-MYERS SQUIBB COMPANY-12659355

PATIENT
  Sex: Male

DRUGS (2)
  1. HALOG CREAM 0.1% [Suspect]
     Indication: SKIN GRAFT
     Route: 061
  2. BACITRACIN [Suspect]

REACTIONS (2)
  - DERMATITIS ALLERGIC [None]
  - SKIN DISCOLOURATION [None]
